FAERS Safety Report 8811317 (Version 1)
Quarter: 2012Q4

REPORT INFORMATION
  Report Type: 
  Country: US (occurrence: US)
  Receive Date: 20120927
  Receipt Date: 20120927
  Transmission Date: 20130627
  Serious: Yes (Other)
  Sender: FDA-Public Use
  Company Number: US-ELI_LILLY_AND_COMPANY-US201209004699

PATIENT
  Age: 50 Year
  Sex: Male

DRUGS (2)
  1. CYMBALTA [Suspect]
     Indication: DEPRESSION
     Dosage: 60 mg, qid
  2. GABAPENTIN [Concomitant]

REACTIONS (7)
  - Suicidal ideation [Unknown]
  - Prescribed overdose [Unknown]
  - Drug dose omission [Unknown]
  - Drug withdrawal syndrome [Unknown]
  - Headache [Unknown]
  - Mood altered [Unknown]
  - Crying [Unknown]
